FAERS Safety Report 8507309-0 (Version None)
Quarter: 2012Q3

REPORT INFORMATION
  Report Type: 
  Country: None (occurrence: None)
  Receive Date: 20120712
  Receipt Date: 20120703
  Transmission Date: 20120928
  Serious: Yes (Other)
  Sender: FDA-Public Use
  Company Number: US-ALLERGAN-1209189US

PATIENT
  Age: 71 Year
  Sex: Female

DRUGS (1)
  1. REFRESH OPTIVE SENSITIVE [Suspect]
     Indication: DRY EYE
     Dosage: 2 GTT, SINGLE
     Route: 047
     Dates: start: 20120703, end: 20120703

REACTIONS (6)
  - DYSPNOEA [None]
  - PARANASAL SINUS HYPERSECRETION [None]
  - DYSGEUSIA [None]
  - THROAT IRRITATION [None]
  - THROAT TIGHTNESS [None]
  - DYSPHONIA [None]
